FAERS Safety Report 6479459-4 (Version None)
Quarter: 2009Q4

REPORT INFORMATION
  Report Type: 
  Country: None (occurrence: None)
  Receive Date: 20091207
  Receipt Date: 20091207
  Transmission Date: 20100525
  Serious: Yes (Disabling)
  Sender: FDA-Public Use
  Company Number: None

PATIENT
  Sex: Female
  Weight: 86.1834 kg

DRUGS (4)
  1. ZYCAM -PLACE ON TONGUE [Suspect]
     Indication: BRONCHITIS
     Dosage: TONGUE 1ST WEEK OF 5/2009 SINUS/BRONCHITIS
     Route: 048
     Dates: start: 20090501
  2. ZYCAM -PLACE ON TONGUE [Suspect]
     Indication: COUGH
     Dosage: TONGUE 1ST WEEK OF 5/2009 SINUS/BRONCHITIS
     Route: 048
     Dates: start: 20090501
  3. ZYCAM -PLACE ON TONGUE [Suspect]
     Indication: RHINORRHOEA
     Dosage: TONGUE 1ST WEEK OF 5/2009 SINUS/BRONCHITIS
     Route: 048
     Dates: start: 20090501
  4. ZYCAM -PLACE ON TONGUE [Suspect]
     Indication: SINUS DISORDER
     Dosage: TONGUE 1ST WEEK OF 5/2009 SINUS/BRONCHITIS
     Route: 048
     Dates: start: 20090501

REACTIONS (3)
  - AGEUSIA [None]
  - ANOSMIA [None]
  - PRODUCT QUALITY ISSUE [None]
